FAERS Safety Report 7534893-6 (Version None)
Quarter: 2011Q2

REPORT INFORMATION
  Report Type: 
  Country: None (occurrence: None)
  Receive Date: 20110609
  Receipt Date: 20081106
  Transmission Date: 20111010
  Serious: Yes (Hospitalization)
  Sender: FDA-Public Use
  Company Number: PHHY2008CA27577

PATIENT
  Sex: Female

DRUGS (3)
  1. DESFERAL [Suspect]
     Indication: MYELODYSPLASTIC SYNDROME
     Route: 042
  2. FERRITIN [Concomitant]
     Indication: ANAEMIA
  3. EXJADE [Suspect]
     Indication: MYELODYSPLASTIC SYNDROME
     Dosage: 2000 MG
     Route: 048

REACTIONS (2)
  - CELLULITIS STAPHYLOCOCCAL [None]
  - SEPSIS [None]
